FAERS Safety Report 25472489 (Version 4)
Quarter: 2025Q4

REPORT INFORMATION
  Report Type: Report from Study
  Country: KR (occurrence: KR)
  Receive Date: 20250624
  Receipt Date: 20251211
  Transmission Date: 20260118
  Serious: Yes (Other)
  Sender: TAKEDA
  Company Number: KR-TAKEDA-2025TUS056689

PATIENT
  Age: 30 Year
  Sex: Female
  Weight: 60.9 kg

DRUGS (53)
  1. MARIBAVIR [Suspect]
     Active Substance: MARIBAVIR
     Indication: Cytomegalovirus infection
     Dosage: 400 MILLIGRAM, BID
     Dates: start: 20250403, end: 20250610
  2. MYCOPHENOLATE MOFETIL [Concomitant]
     Active Substance: MYCOPHENOLATE MOFETIL
     Indication: Prophylaxis
     Dosage: 500 MILLIGRAM, TID
     Dates: start: 20250325, end: 20250409
  3. MYCOPHENOLATE MOFETIL [Concomitant]
     Active Substance: MYCOPHENOLATE MOFETIL
     Dosage: 500 MILLIGRAM, BID
     Dates: start: 20250410, end: 20250429
  4. MYCOPHENOLATE MOFETIL [Concomitant]
     Active Substance: MYCOPHENOLATE MOFETIL
     Dosage: 250 MILLIGRAM, BID
     Dates: start: 20250430, end: 20250507
  5. MYCOPHENOLATE MOFETIL [Concomitant]
     Active Substance: MYCOPHENOLATE MOFETIL
     Dosage: 500 MILLIGRAM, BID
     Dates: start: 20250508, end: 20250520
  6. MYCOPHENOLATE MOFETIL [Concomitant]
     Active Substance: MYCOPHENOLATE MOFETIL
     Dosage: 500 MILLIGRAM, TID
     Dates: start: 20250521, end: 20250604
  7. MYCOPHENOLATE MOFETIL [Concomitant]
     Active Substance: MYCOPHENOLATE MOFETIL
     Dosage: 250 MILLIGRAM, BID
     Dates: start: 20250605
  8. TACROLIMUS [Concomitant]
     Active Substance: TACROLIMUS
     Indication: Acute graft versus host disease in intestine
     Dosage: 1 MILLIGRAM
     Dates: start: 20250325, end: 20250327
  9. TACROLIMUS [Concomitant]
     Active Substance: TACROLIMUS
     Indication: Prophylaxis
     Dosage: 1.25 MILLIGRAM
     Dates: start: 20250328, end: 20250330
  10. TACROLIMUS [Concomitant]
     Active Substance: TACROLIMUS
     Dosage: 1.75 MILLIGRAM
     Dates: start: 20250331, end: 20250331
  11. TACROLIMUS [Concomitant]
     Active Substance: TACROLIMUS
     Dosage: 1 MILLIGRAM, BID
     Dates: start: 20250401, end: 20250402
  12. TACROLIMUS [Concomitant]
     Active Substance: TACROLIMUS
     Dosage: 2.25 MILLIGRAM
     Dates: start: 20250403, end: 20250403
  13. TACROLIMUS [Concomitant]
     Active Substance: TACROLIMUS
     Dosage: 1.25 MILLIGRAM, BID
     Dates: start: 20250404, end: 20250409
  14. TACROLIMUS [Concomitant]
     Active Substance: TACROLIMUS
     Dosage: 1.75 MILLIGRAM
     Dates: start: 20250410, end: 20250413
  15. TACROLIMUS [Concomitant]
     Active Substance: TACROLIMUS
     Dosage: 1.25 MILLIGRAM
     Dates: start: 20250414, end: 20250414
  16. TACROLIMUS [Concomitant]
     Active Substance: TACROLIMUS
     Dosage: 0.5 MILLIGRAM, BID
     Dates: start: 20250415, end: 20250423
  17. TACROLIMUS [Concomitant]
     Active Substance: TACROLIMUS
     Dosage: 0.25 MILLIGRAM, BID
     Dates: start: 20250424
  18. URSODIOL [Concomitant]
     Active Substance: URSODIOL
     Indication: Prophylaxis
     Dosage: 200 MILLIGRAM, TID
     Dates: start: 20240722
  19. TIROPRAMIDE [Concomitant]
     Active Substance: TIROPRAMIDE
     Indication: Prophylaxis
     Dosage: 100 MILLIGRAM, TID
     Dates: start: 20250301, end: 20250424
  20. Godex [Concomitant]
     Indication: Prophylaxis
     Dosage: UNK UNK, TID
     Dates: start: 20250206, end: 20250610
  21. Pennel [Concomitant]
     Indication: Prophylaxis
     Dosage: UNK UNK, TID
     Dates: start: 20250316, end: 20250429
  22. DIFLUCAN [Concomitant]
     Active Substance: FLUCONAZOLE
     Indication: Prophylaxis
     Dosage: 400 MILLIGRAM, QD
     Dates: start: 20250307, end: 20250413
  23. PANTOPRAZOLE SODIUM [Concomitant]
     Active Substance: PANTOPRAZOLE SODIUM
     Indication: Prophylaxis
     Dosage: 40 MILLIGRAM, QD
     Dates: start: 20250223, end: 20250415
  24. TRAMADOL HYDROCHLORIDE [Concomitant]
     Active Substance: TRAMADOL HYDROCHLORIDE
     Indication: Acute graft versus host disease in intestine
     Dosage: 50 MILLIGRAM
     Dates: start: 20250224, end: 20250407
  25. HUMULIN R [Concomitant]
     Active Substance: INSULIN HUMAN
     Indication: Hyperglycaemia
     Dosage: 04 INTERNATIONAL UNIT
     Dates: start: 20250303, end: 20250415
  26. Freepan [Concomitant]
     Indication: Acute graft versus host disease in intestine
     Dosage: 20 MILLIGRAM, TID
     Dates: start: 20250226, end: 20250415
  27. Hepa merz [Concomitant]
     Indication: Acute graft versus host disease in liver
     Dosage: 3000 MILLIGRAM, QD
     Dates: start: 20250315, end: 20250415
  28. SULFAMETHOXAZOLE\TRIMETHOPRIM [Concomitant]
     Active Substance: SULFAMETHOXAZOLE\TRIMETHOPRIM
     Indication: Prophylaxis
     Dosage: 400 MILLIGRAM, QD
     Dates: start: 20240704
  29. METHYLPREDNISOLONE [Concomitant]
     Active Substance: METHYLPREDNISOLONE
     Indication: Acute graft versus host disease in intestine
     Dosage: 40 MILLIGRAM, BID
     Dates: start: 20250403, end: 20250404
  30. METHYLPREDNISOLONE [Concomitant]
     Active Substance: METHYLPREDNISOLONE
     Dosage: 30 MILLIGRAM, BID
     Dates: start: 20250405, end: 20250407
  31. METHYLPREDNISOLONE [Concomitant]
     Active Substance: METHYLPREDNISOLONE
     Dosage: 20 MILLIGRAM, BID
     Dates: start: 20250408, end: 20250409
  32. METHYLPREDNISOLONE [Concomitant]
     Active Substance: METHYLPREDNISOLONE
     Dosage: 15 MILLIGRAM, BID
     Dates: start: 20250410, end: 20250411
  33. MORPHINE SULFATE [Concomitant]
     Active Substance: MORPHINE SULFATE
     Indication: Acute graft versus host disease in intestine
     Dosage: 3 MILLIGRAM
     Dates: start: 20250407, end: 20250408
  34. MORPHINE SULFATE [Concomitant]
     Active Substance: MORPHINE SULFATE
     Dosage: 10 MILLIGRAM, QD
     Dates: start: 20250411, end: 20250414
  35. Solondo [Concomitant]
     Indication: Acute graft versus host disease in intestine
     Dosage: 10 MILLIGRAM, BID
     Dates: start: 20250413, end: 20250423
  36. HUMAN IMMUNOGLOBULIN G [Concomitant]
     Active Substance: HUMAN IMMUNOGLOBULIN G
     Indication: Prophylaxis
     Dosage: 30000 MILLIGRAM, QD
     Dates: start: 20250424, end: 20250424
  37. HUMAN IMMUNOGLOBULIN G [Concomitant]
     Active Substance: HUMAN IMMUNOGLOBULIN G
     Dosage: 32000 MILLIGRAM, QD
     Dates: start: 20250521, end: 20250521
  38. Albumin 20 trcs [Concomitant]
     Indication: Hypoalbuminaemia
     Dosage: 100 MILLIGRAM, QD
     Dates: start: 20250411, end: 20250411
  39. Albumin 20 trcs [Concomitant]
     Dosage: 100 MILLIGRAM, QD
     Dates: start: 20250414, end: 20250415
  40. Albumin 20 trcs [Concomitant]
     Dosage: 100 MILLIGRAM, QD
     Dates: start: 20250514, end: 20250514
  41. Vacrax [Concomitant]
     Indication: Herpes virus infection
     Dosage: 200 MILLIGRAM, BID
     Dates: start: 20250414, end: 20250610
  42. NOXAFIL [Concomitant]
     Active Substance: POSACONAZOLE
     Indication: Fungal infection
     Dosage: 300 MILLIGRAM, QD
     Dates: start: 20250414
  43. BUTYLSCOPOLAMINE BROMIDE [Concomitant]
     Active Substance: BUTYLSCOPOLAMINE BROMIDE
     Indication: Acute graft versus host disease
     Dosage: 10 MILLIGRAM, TID
     Dates: start: 20250416, end: 20250424
  44. Meckool [Concomitant]
     Indication: Prophylaxis of nausea and vomiting
     Dosage: 10 MILLIGRAM, QD
     Dates: start: 20250410, end: 20250413
  45. METOCLOPRAMIDE HYDROCHLORIDE [Concomitant]
     Active Substance: METOCLOPRAMIDE HYDROCHLORIDE
     Indication: Prophylaxis of nausea and vomiting
     Dosage: 5 MILLIGRAM, TID
     Dates: start: 20250416, end: 20250420
  46. MELATONIN [Concomitant]
     Active Substance: MELATONIN
     Indication: Insomnia
     Dosage: 2 MILLIGRAM, QD
     Dates: start: 20250414, end: 20250424
  47. MELATONIN [Concomitant]
     Active Substance: MELATONIN
     Dosage: 2 MILLIGRAM, QD
     Dates: start: 20250521, end: 20250528
  48. OXYCODONE HYDROCHLORIDE [Concomitant]
     Active Substance: OXYCODONE HYDROCHLORIDE
     Indication: Acute graft versus host disease
     Dosage: 3 MILLIGRAM
     Dates: start: 20250409, end: 20250416
  49. OXYCODONE HYDROCHLORIDE [Concomitant]
     Active Substance: OXYCODONE HYDROCHLORIDE
     Indication: Acute graft versus host disease
     Dosage: 5 MILLIGRAM, Q4HR
     Dates: start: 20250416
  50. Fotagel [Concomitant]
     Indication: Diarrhoea
     Dosage: 20 MILLILITER, TID
     Dates: start: 20250416, end: 20250422
  51. TEGOPRAZAN [Concomitant]
     Active Substance: TEGOPRAZAN
     Indication: Gastritis
     Dosage: 50 MILLIGRAM, QD
     Dates: start: 20250416, end: 20250424
  52. TRANEXAMIC ACID [Concomitant]
     Active Substance: TRANEXAMIC ACID
     Indication: Haemorrhage
     Dosage: 1500 MILLIGRAM, QD
     Dates: start: 20250403, end: 20250406
  53. VAXNEUVANCE [Concomitant]
     Active Substance: CORYNEBACTERIUM DIPHTHERIAE CRM197 PROTEIN\STREPTOCOCCUS PNEUMONIAE TYPE 1 CAPSULAR POLYSACCHARIDE D
     Indication: Immunisation
     Dosage: UNK UNK, QD
     Dates: start: 20250430, end: 20250430

REACTIONS (2)
  - Graft versus host disease oral [Recovered/Resolved]
  - Drug ineffective [Recovered/Resolved]

NARRATIVE: CASE EVENT DATE: 20250424
